FAERS Safety Report 12493880 (Version 3)
Quarter: 2017Q1

REPORT INFORMATION
  Report Type: Spontaneous
  Country: US (occurrence: US)
  Receive Date: 20160623
  Receipt Date: 20170317
  Transmission Date: 20170428
  Serious: Yes (Hospitalization, Other)
  Sender: FDA-Public Use
  Company Number: US-ELI_LILLY_AND_COMPANY-US201606006479

PATIENT
  Sex: Male

DRUGS (7)
  1. HUMULIN N [Suspect]
     Active Substance: INSULIN HUMAN
     Dosage: 5 U, QD
     Route: 065
  2. HUMULIN R [Suspect]
     Active Substance: INSULIN HUMAN
     Dosage: 40 U, QD
     Route: 065
  3. HUMULIN R [Suspect]
     Active Substance: INSULIN HUMAN
     Dosage: 40 U, QD
     Route: 065
  4. HUMULIN N [Suspect]
     Active Substance: INSULIN HUMAN
     Indication: TYPE 1 DIABETES MELLITUS
     Dosage: 5 U, QD
     Route: 065
     Dates: start: 195705
  5. HUMULIN N [Suspect]
     Active Substance: INSULIN HUMAN
     Dosage: 6 U, QD
     Route: 065
  6. HUMULIN N [Suspect]
     Active Substance: INSULIN HUMAN
     Dosage: 5 U, QD
     Route: 065
  7. HUMULIN R [Suspect]
     Active Substance: INSULIN HUMAN
     Indication: TYPE 1 DIABETES MELLITUS
     Dosage: 40 U, QD
     Route: 065
     Dates: start: 195705

REACTIONS (13)
  - Visual acuity reduced [Not Recovered/Not Resolved]
  - Back pain [Unknown]
  - Incorrect drug administration duration [Unknown]
  - Retinopathy [Not Recovered/Not Resolved]
  - Peripheral arthritis [Unknown]
  - Arthralgia [Unknown]
  - Sciatica [Unknown]
  - Blood glucose decreased [Unknown]
  - Abdominal discomfort [Unknown]
  - Spinal compression fracture [Unknown]
  - Carpal tunnel syndrome [Unknown]
  - Diabetes mellitus inadequate control [Unknown]
  - Road traffic accident [Unknown]

NARRATIVE: CASE EVENT DATE: 1991
